FAERS Safety Report 5204035-0 (Version None)
Quarter: 2007Q1

REPORT INFORMATION
  Report Type: 
  Country: None (occurrence: None)
  Receive Date: 20070110
  Receipt Date: 20051111
  Transmission Date: 20070707
  Serious: No
  Sender: FDA-Public Use
  Company Number: US-BRISTOL-MYERS SQUIBB COMPANY-13156476

PATIENT
  Age: 61 Year
  Sex: Female

DRUGS (9)
  1. ABILIFY [Suspect]
     Indication: BIPOLAR DISORDER
     Route: 048
     Dates: start: 20030411, end: 20050411
  2. VITAMIN E [Concomitant]
  3. PAROXETINE HCL [Concomitant]
  4. WELLBUTRIN [Concomitant]
  5. ESKALITH [Concomitant]
  6. AMITRIPTYLINE HCL [Concomitant]
  7. GLUCOPHAGE [Concomitant]
  8. AVANDIA [Concomitant]
  9. INSULIN [Concomitant]

REACTIONS (1)
  - TARDIVE DYSKINESIA [None]
